FAERS Safety Report 6291598-X (Version None)
Quarter: 2009Q3

REPORT INFORMATION
  Report Type: 
  Country: None (occurrence: None)
  Receive Date: 20090730
  Receipt Date: 20090715
  Transmission Date: 20100115
  Serious: Yes (Hospitalization)
  Sender: FDA-Public Use
  Company Number: TW-GENENTECH-287507

PATIENT
  Sex: Female

DRUGS (9)
  1. PERTUZUMAB [Suspect]
     Indication: BREAST CANCER
     Dosage: 420 MG, Q3W
     Route: 042
     Dates: start: 20090423
  2. TRASTUZUMAB [Suspect]
     Indication: BREAST CANCER
     Dosage: 488 MG, Q3W
     Route: 042
     Dates: start: 20090423
  3. DOCETAXEL [Suspect]
     Indication: BREAST CANCER
     Dosage: 124 MG, Q3W
     Route: 042
     Dates: start: 20090423
  4. BROWN MIXTURE (TAIWAN) [Concomitant]
     Indication: DRUG USE FOR UNKNOWN INDICATION
     Dosage: UNK
     Dates: start: 20090520
  5. LORATADINE [Concomitant]
     Indication: DRUG USE FOR UNKNOWN INDICATION
     Dosage: UNK
     Dates: start: 20090520, end: 20090521
  6. LOPERAMIDE HYDROCHLORIDE [Concomitant]
     Indication: DRUG USE FOR UNKNOWN INDICATION
     Dosage: UNK
     Dates: start: 20090525, end: 20090528
  7. ESTAZOLAM [Concomitant]
     Indication: DRUG USE FOR UNKNOWN INDICATION
     Dosage: UNK
     Dates: start: 20090522
  8. MEPERIDINE HCL [Concomitant]
     Indication: DRUG USE FOR UNKNOWN INDICATION
     Dosage: UNK
     Dates: start: 20090520, end: 20090525
  9. ESOMEPRAZOLE MAGNESIUM [Concomitant]
     Indication: DRUG USE FOR UNKNOWN INDICATION
     Dosage: UNK
     Dates: start: 20090623

REACTIONS (1)
  - HAEMATURIA [None]
